FAERS Safety Report 4431938-7 (Version None)
Quarter: 2004Q3

REPORT INFORMATION
  Report Type: 
  Country: None (occurrence: None)
  Receive Date: 20040818
  Receipt Date: 20040730
  Transmission Date: 20050211
  Serious: Yes (Hospitalization)
  Sender: FDA-Public Use
  Company Number: USA040774130

PATIENT
  Age: 70 Year
  Sex: Male
  Weight: 68 kg

DRUGS (1)
  1. HUMATROPE [Suspect]
     Indication: HYPOPHYSITIS
     Dates: start: 19990101

REACTIONS (9)
  - BODY HEIGHT DECREASED [None]
  - CONDITION AGGRAVATED [None]
  - DIFFICULTY IN WALKING [None]
  - HAIR COLOUR CHANGES [None]
  - LIMB INJURY [None]
  - MUSCLE DISORDER [None]
  - PHARMACEUTICAL PRODUCT COMPLAINT [None]
  - UNEXPECTED THERAPEUTIC DRUG EFFECT [None]
  - WEIGHT DECREASED [None]
